FAERS Safety Report 10614590 (Version 1)
Quarter: 2014Q4

REPORT INFORMATION
  Report Type: Spontaneous
  Country: GB (occurrence: GB)
  Receive Date: 20141130
  Receipt Date: 20141130
  Transmission Date: 20150529
  Serious: Yes (Life-Threatening, Other)
  Sender: FDA-Public Use
  Company Number: PHHY2014GB152821

PATIENT
  Sex: Female

DRUGS (6)
  1. DIHYDROCODEINE [Suspect]
     Active Substance: DIHYDROCODEINE
     Dosage: 40 DF (OVERDOSE: 40 TABLETS)
     Route: 048
     Dates: start: 201407, end: 201407
  2. CITALOPRAM [Suspect]
     Active Substance: CITALOPRAM HYDROBROMIDE
     Indication: DEPRESSION
     Dosage: 40 MG DAILY
     Route: 048
     Dates: start: 2014
  3. CODEINE PHOSPHATE [Suspect]
     Active Substance: CODEINE PHOSPHATE
     Dosage: 1800 MG (OVERDOSE: 60 X 30 MG TABLETS)
     Route: 048
     Dates: start: 201407, end: 201407
  4. CITALOPRAM [Suspect]
     Active Substance: CITALOPRAM HYDROBROMIDE
     Dosage: 30 MG DAILY
     Route: 048
     Dates: start: 2014, end: 2014
  5. CITALOPRAM [Suspect]
     Active Substance: CITALOPRAM HYDROBROMIDE
     Dosage: 20 MG DAILY
     Route: 048
     Dates: start: 201404, end: 2014
  6. TRAMADOL [Suspect]
     Active Substance: TRAMADOL
     Dosage: 100 DF (OVERDOSE: 100 TABLETS)
     Route: 048
     Dates: start: 201407, end: 201407

REACTIONS (3)
  - Suicide attempt [Recovered/Resolved]
  - Intentional overdose [Recovered/Resolved]
  - Malabsorption [Recovered/Resolved]

NARRATIVE: CASE EVENT DATE: 201407
